FAERS Safety Report 5208853-4 (Version None)
Quarter: 2007Q1

REPORT INFORMATION
  Report Type: 
  Country: None (occurrence: None)
  Receive Date: 20070116
  Receipt Date: 20070108
  Transmission Date: 20070707
  Serious: Yes (Hospitalization)
  Sender: FDA-Public Use
  Company Number: GB-BRISTOL-MYERS SQUIBB COMPANY-13640370

PATIENT
  Age: 70 Year
  Sex: Female

DRUGS (5)
  1. CYCLOPHOSPHAMIDE [Suspect]
     Indication: LYMPHOMA
  2. DOXORUBICIN HCL [Suspect]
     Indication: LYMPHOMA
  3. MABTHERA [Suspect]
     Indication: LYMPHOMA
  4. PREDNISONE TAB [Suspect]
     Indication: LYMPHOMA
  5. VINCRISTINE [Suspect]
     Indication: LYMPHOMA

REACTIONS (1)
  - CENTRAL PONTINE MYELINOLYSIS [None]
